FAERS Safety Report 10982819 (Version 1)
Quarter: 2015Q2

REPORT INFORMATION
  Report Type: Spontaneous
  Country: US (occurrence: None)
  Receive Date: 20150402
  Receipt Date: 20150402
  Transmission Date: 20150821
  Serious: Yes (Other)
  Sender: FDA-Public Use
  Company Number: None

PATIENT
  Age: 57 Year
  Sex: Female

DRUGS (1)
  1. ENBREL [Suspect]
     Active Substance: ETANERCEPT
     Indication: PSORIATIC ARTHROPATHY
     Route: 058
     Dates: start: 20141216

REACTIONS (6)
  - Oral mucosal eruption [None]
  - Rash [None]
  - Pain in extremity [None]
  - Drug effect decreased [None]
  - Pruritus generalised [None]
  - Product lot number issue [None]

NARRATIVE: CASE EVENT DATE: 20150331
